FAERS Safety Report 9658951 (Version 2)
Quarter: 2013Q4

REPORT INFORMATION
  Report Type: Spontaneous
  Country: FR (occurrence: FR)
  Receive Date: 20131031
  Receipt Date: 20131107
  Transmission Date: 20140711
  Serious: Yes (Life-Threatening, Hospitalization)
  Sender: FDA-Public Use
  Company Number: FR-ROCHE-1296480

PATIENT
  Age: 32 Year
  Sex: Male

DRUGS (7)
  1. CELLCEPT [Suspect]
     Indication: PRODUCT USED FOR UNKNOWN INDICATION
     Route: 048
     Dates: start: 20130410
  2. EUPANTOL [Suspect]
     Indication: PRODUCT USED FOR UNKNOWN INDICATION
     Route: 048
     Dates: start: 20130812, end: 201309
  3. KAYEXALATE [Concomitant]
     Indication: HYPERKALAEMIA
     Route: 048
     Dates: start: 20130513
  4. UVEDOSE [Concomitant]
     Indication: VITAMIN D DEFICIENCY
     Route: 048
     Dates: start: 20130410
  5. NEORAL [Concomitant]
     Route: 065
     Dates: start: 20130410
  6. AMLOR [Concomitant]
     Route: 048
     Dates: start: 20121203
  7. CARDENSIEL [Concomitant]
     Route: 048
     Dates: start: 20121126

REACTIONS (4)
  - Agranulocytosis [Recovered/Resolved]
  - Lymphopenia [Recovered/Resolved]
  - Monocytosis [Recovered/Resolved]
  - Febrile neutropenia [Recovered/Resolved]
